FAERS Safety Report 12110377 (Version 1)
Quarter: 2016Q1

REPORT INFORMATION
  Report Type: Spontaneous
  Country: FR (occurrence: FR)
  Receive Date: 20160224
  Receipt Date: 20160224
  Transmission Date: 20160526
  Serious: Yes (Hospitalization)
  Sender: FDA-Public Use
  Company Number: FR-BAXTER-2016BAX007948

PATIENT
  Age: 66 Year
  Sex: Female

DRUGS (4)
  1. DOXORUBICINE TEVA [Suspect]
     Active Substance: DOXORUBICIN
     Dosage: ON D2
     Route: 042
     Dates: start: 20151209, end: 20151209
  2. DOXORUBICINE TEVA [Suspect]
     Active Substance: DOXORUBICIN
     Indication: LIPOSARCOMA
     Dosage: ON D1, TOTAL DOSE OF 84 MG
     Route: 042
     Dates: start: 20151208, end: 20151208
  3. HOLOXAN 2000 MG, POUDRE POUR USAGE PARENT?RAL [Suspect]
     Active Substance: IFOSFAMIDE
     Indication: LIPOSARCOMA
     Route: 042
     Dates: start: 20151209, end: 20151209
  4. CISPLATIN ACCORD [Suspect]
     Active Substance: CISPLATIN
     Indication: LIPOSARCOMA
     Dosage: ON D3, TOTAL DOSE OF 141 MG
     Route: 042
     Dates: start: 20151210, end: 20151210

REACTIONS (6)
  - Vomiting [Unknown]
  - Renal failure [Recovered/Resolved]
  - Diarrhoea [Unknown]
  - Febrile neutropenia [Recovered/Resolved]
  - Hypocalcaemia [Not Recovered/Not Resolved]
  - Hypomagnesaemia [Not Recovered/Not Resolved]

NARRATIVE: CASE EVENT DATE: 201512
